FAERS Safety Report 8574096-X (Version None)
Quarter: 2012Q3

REPORT INFORMATION
  Report Type: 
  Country: None (occurrence: None)
  Receive Date: 20120806
  Receipt Date: 20120801
  Transmission Date: 20120928
  Serious: Yes (Other)
  Sender: FDA-Public Use
  Company Number: PHHY2012JP067028

PATIENT
  Sex: Female

DRUGS (8)
  1. ARMODAFINIL [Concomitant]
     Indication: PROPHYLAXIS
     Dosage: 100 MG, UNK
     Route: 048
     Dates: start: 20050124, end: 20060326
  2. ADALAT [Concomitant]
     Dosage: 40 MG, UNK
     Route: 048
     Dates: start: 20050101, end: 20060326
  3. LIPITOR [Concomitant]
     Dosage: 5 MG, UNK
     Route: 048
     Dates: start: 20050101, end: 20060326
  4. ZOLEDRONOC ACID [Suspect]
     Dosage: 4 MG, (PER ADMINISTRATION)
     Route: 042
     Dates: start: 20060223, end: 20060223
  5. ELCITONIN [Concomitant]
     Dosage: 40 IU, UNK
     Dates: start: 20060223, end: 20060223
  6. ISOSORBIDE DINITRATE [Concomitant]
     Dosage: 40 MG, UNK
     Dates: start: 20060225, end: 20060326
  7. PREDNISOLONE [Concomitant]
     Dosage: 7.5 MG, UNK
     Route: 048
     Dates: start: 20051116, end: 20060326
  8. SULFAMETHOXAZOLE AND TRIMETHOPRIM [Concomitant]
     Indication: PROPHYLAXIS
     Dosage: 1 DF, UNK
     Route: 048
     Dates: start: 20050124, end: 20060326

REACTIONS (2)
  - CHEST PAIN [None]
  - PERICARDIAL EFFUSION [None]
